FAERS Safety Report 5950557-4 (Version None)
Quarter: 2008Q4

REPORT INFORMATION
  Report Type: 
  Country: None (occurrence: None)
  Receive Date: 20081022
  Receipt Date: 20080722
  Transmission Date: 20090506
  Serious: No
  Sender: FDA-Public Use
  Company Number: ALL1-2008-01745

PATIENT
  Age: 66 Year
  Sex: Female
  Weight: 50.8 kg

DRUGS (5)
  1. VYVANSE [Suspect]
     Indication: ATTENTION DEFICIT/HYPERACTIVITY DISORDER
     Dosage: 70 MG, 1X/DAY: QD, ORAL; 30 MG, 2X/DAY: BID, ORAL; 50 MG, 1X/DAY: QD, ORAL
     Route: 048
     Dates: start: 20071001, end: 20080601
  2. VYVANSE [Suspect]
     Indication: ATTENTION DEFICIT/HYPERACTIVITY DISORDER
     Dosage: 70 MG, 1X/DAY: QD, ORAL; 30 MG, 2X/DAY: BID, ORAL; 50 MG, 1X/DAY: QD, ORAL
     Route: 048
     Dates: start: 20080601, end: 20080601
  3. VYVANSE [Suspect]
     Indication: ATTENTION DEFICIT/HYPERACTIVITY DISORDER
     Dosage: 70 MG, 1X/DAY: QD, ORAL; 30 MG, 2X/DAY: BID, ORAL; 50 MG, 1X/DAY: QD, ORAL
     Route: 048
     Dates: start: 20080701
  4. SUDAFED /00070002/(OXYMEIAZOLINE HIYDROCHLORFOE) [Suspect]
     Indication: COUGH
     Dates: start: 20080101
  5. SYMBICORT [Suspect]
     Indication: LUNG DISORDER
     Dosage: RESPIRATORY
     Route: 055
     Dates: start: 20080701

REACTIONS (11)
  - BRADYPHRENIA [None]
  - BRONCHITIS [None]
  - COUGH [None]
  - DRUG EFFECT DECREASED [None]
  - HYPERSENSITIVITY [None]
  - INAPPROPRIATE SCHEDULE OF DRUG ADMINISTRATION [None]
  - NERVOUSNESS [None]
  - OEDEMA PERIPHERAL [None]
  - PHARYNGEAL OEDEMA [None]
  - SALIVARY HYPERSECRETION [None]
  - SWOLLEN TONGUE [None]
